FAERS Safety Report 9470580 (Version 1)
Quarter: 2013Q3

REPORT INFORMATION
  Report Type: Spontaneous
  Country: ID (occurrence: ID)
  Receive Date: 20130822
  Receipt Date: 20130822
  Transmission Date: 20140515
  Serious: Yes (Death)
  Sender: FDA-Public Use
  Company Number: ID-B.I. PHARMACEUTICALS,INC./RIDGEFIELD-2013-BI-25940IP

PATIENT
  Sex: Female

DRUGS (2)
  1. PRADAXA [Suspect]
     Indication: ISCHAEMIC STROKE
     Dosage: 220 MG
  2. CLONIDIN [Concomitant]
     Indication: HYPERTENSION
     Dosage: 150 MG

REACTIONS (1)
  - Haemorrhagic stroke [Fatal]
